FAERS Safety Report 14983120 (Version 3)
Quarter: 2024Q1

REPORT INFORMATION
  Report Type: Spontaneous
  Country: CZ (occurrence: CZ)
  Receive Date: 20180607
  Receipt Date: 20240302
  Transmission Date: 20240410
  Serious: Yes (Life-Threatening, Other)
  Sender: FDA-Public Use
  Company Number: CZ-ACCORD-067985

PATIENT
  Age: 62 Year
  Sex: Male

DRUGS (11)
  1. IRINOTECAN HYDROCHLORIDE [Suspect]
     Active Substance: IRINOTECAN HYDROCHLORIDE
     Indication: Colorectal cancer metastatic
     Dosage: 7 CYCLE
     Dates: start: 201504, end: 201504
  2. FLUOROURACIL [Suspect]
     Active Substance: FLUOROURACIL
     Indication: Colorectal cancer metastatic
     Dosage: TOTAL 12 CYCLES-FOLFOX4, 7 CYCLE
     Route: 042
     Dates: start: 20100120, end: 201006
  3. OXALIPLATIN [Suspect]
     Active Substance: OXALIPLATIN
     Indication: Colorectal cancer metastatic
     Dosage: TOTAL OF 12 CYCLES
     Route: 042
     Dates: start: 20100120, end: 201006
  4. LEUCOVORIN [Suspect]
     Active Substance: LEUCOVORIN\LEUCOVORIN CALCIUM
     Indication: Colorectal cancer metastatic
     Dosage: TOTAL OF 12 CYCLES WITH FOLFOX4
     Route: 042
     Dates: start: 20100120, end: 201006
  5. BEVACIZUMAB [Suspect]
     Active Substance: BEVACIZUMAB
     Indication: Colorectal cancer metastatic
     Dosage: 7 CYCLE
     Dates: start: 201504, end: 201508
  6. CALCIUM [Suspect]
     Active Substance: CALCIUM
     Indication: Adenocarcinoma of colon
     Dates: start: 201106, end: 201110
  7. AFLIBERCEPT [Suspect]
     Active Substance: AFLIBERCEPT
     Indication: Colon cancer
  8. PALONOSETRON HYDROCHLORIDE [Suspect]
     Active Substance: PALONOSETRON HYDROCHLORIDE
     Indication: Product used for unknown indication
     Dates: start: 20151103
  9. DEXAMETHASONE [Concomitant]
     Active Substance: DEXAMETHASONE
     Indication: Premedication
  10. IRINOTECAN HYDROCHLORIDE [Suspect]
     Active Substance: IRINOTECAN HYDROCHLORIDE
     Indication: Colorectal cancer metastatic
     Dates: start: 201507, end: 201510
  11. FLUOROURACIL [Suspect]
     Active Substance: FLUOROURACIL
     Indication: Colorectal cancer metastatic
     Route: 042
     Dates: start: 201007, end: 201010

REACTIONS (11)
  - Peripheral sensory neuropathy [Unknown]
  - Drug intolerance [Unknown]
  - Craniofacial fracture [Unknown]
  - Fall [Unknown]
  - Loss of consciousness [Unknown]
  - Cardio-respiratory arrest [Unknown]
  - Tumour haemorrhage [Recovered/Resolved]
  - Circulatory collapse [Recovered/Resolved]
  - Gastrointestinal disorder [Unknown]
  - Malignant neoplasm progression [Unknown]
  - Colon cancer [Unknown]

NARRATIVE: CASE EVENT DATE: 20100101
